FAERS Safety Report 7812564-6 (Version None)
Quarter: 2011Q4

REPORT INFORMATION
  Report Type: 
  Country: None (occurrence: None)
  Receive Date: 20111013
  Receipt Date: 20110831
  Transmission Date: 20120403
  Serious: No
  Sender: FDA-Public Use
  Company Number: US-NOVEN-11US003108

PATIENT
  Sex: Female

DRUGS (2)
  1. FENTANYL [Suspect]
     Indication: PAIN
     Dosage: 100 UG, Q72H
     Route: 062
  2. PERCOCET [Concomitant]
     Indication: PAIN
     Dosage: UNK
     Route: 048

REACTIONS (9)
  - HOT FLUSH [None]
  - TENSION [None]
  - ABDOMINAL DISCOMFORT [None]
  - FEELING JITTERY [None]
  - HYPERHIDROSIS [None]
  - DRUG ADMINISTRATION ERROR [None]
  - DIZZINESS [None]
  - PRODUCT QUALITY ISSUE [None]
  - TREMOR [None]
